FAERS Safety Report 4720827-6 (Version None)
Quarter: 2005Q3

REPORT INFORMATION
  Report Type: 
  Country: None (occurrence: None)
  Receive Date: 20050720
  Receipt Date: 20050718
  Transmission Date: 20060218
  Serious: Yes (Death)
  Sender: FDA-Public Use
  Company Number: 2005S1006303

PATIENT
  Age: 79 Year
  Sex: Male

DRUGS (5)
  1. FENTANYL [Suspect]
     Indication: BACK PAIN
     Dosage: 50 MCG/HR; Q3D; TDER
     Route: 062
     Dates: start: 20050101, end: 20050331
  2. FENTANYL [Suspect]
     Indication: BACK PAIN
     Dosage: 75 MCG/HR; Q3D, TDER
     Route: 062
     Dates: start: 20050331, end: 20050402
  3. ACETAMINOPHEN [Concomitant]
  4. ASPIRIN [Concomitant]
  5. VITAMINS [Concomitant]

REACTIONS (3)
  - HEAT EXPOSURE INJURY [None]
  - JUDGEMENT IMPAIRED [None]
  - SOMNOLENCE [None]
